FAERS Safety Report 24589185 (Version 1)
Quarter: 2024Q4

REPORT INFORMATION
  Report Type: Spontaneous
  Country: US (occurrence: None)
  Receive Date: 20241106
  Receipt Date: 20241106
  Transmission Date: 20250114
  Serious: Yes (Other)
  Sender: Public
  Company Number: None

PATIENT
  Age: 70 Year
  Sex: Male
  Weight: 58.6 kg

DRUGS (2)
  1. CARVYKTI [Suspect]
     Active Substance: CILTACABTAGENE AUTOLEUCEL
     Indication: Plasma cell myeloma
     Dosage: OTHER FREQUENCY : ONCE;?
     Route: 041
     Dates: start: 20240924, end: 20240924
  2. CARVYKTI [Concomitant]
     Active Substance: CILTACABTAGENE AUTOLEUCEL
     Dates: start: 20240924, end: 20240924

REACTIONS (5)
  - Gait disturbance [None]
  - Coordination abnormal [None]
  - Cognitive disorder [None]
  - Reduced facial expression [None]
  - Dysphonia [None]

NARRATIVE: CASE EVENT DATE: 20241011
